FAERS Safety Report 5976242-0 (Version None)
Quarter: 2008Q4

REPORT INFORMATION
  Report Type: 
  Country: None (occurrence: None)
  Receive Date: 20081202
  Receipt Date: 20081120
  Transmission Date: 20090506
  Serious: Yes (Other)
  Sender: FDA-Public Use
  Company Number: SI-ROCHE-598621

PATIENT
  Age: 30 Year
  Sex: Female

DRUGS (2)
  1. XELODA [Suspect]
     Indication: COLORECTAL CANCER
     Dosage: ROUTE REPORTED AS PER OS
     Route: 065
  2. ERBITUX [Concomitant]
     Indication: COLORECTAL CANCER

REACTIONS (1)
  - RENAL DISORDER [None]
